FAERS Safety Report 8493417-X (Version None)
Quarter: 2012Q3

REPORT INFORMATION
  Report Type: 
  Country: None (occurrence: None)
  Receive Date: 20120706
  Receipt Date: 20120628
  Transmission Date: 20120928
  Serious: Yes (Hospitalization)
  Sender: FDA-Public Use
  Company Number: DE-AMGEN-DEUSP2012032039

PATIENT
  Sex: Female

DRUGS (17)
  1. RAMIPRIL [Concomitant]
     Indication: HYPERTENSION
     Dosage: 5 MG, QD
     Route: 048
     Dates: start: 20120412
  2. RITUXAN [Suspect]
     Indication: B-CELL LYMPHOMA
     Dosage: 742.5 MG, Q2WK
     Route: 042
     Dates: start: 20120425
  3. NEBIVOLOL [Concomitant]
     Indication: ATRIAL FIBRILLATION
     Dosage: 5 MG, QD
     Route: 048
     Dates: start: 20120412
  4. PREDNISOLONE [Suspect]
     Indication: B-CELL LYMPHOMA
     Dosage: 100 MG, Q2WK
     Dates: start: 20120426, end: 20120430
  5. TIOTROPIUM BROMIDE [Concomitant]
     Indication: CHRONIC OBSTRUCTIVE PULMONARY DISEASE
     Dosage: 18 MUG, QD
     Route: 048
     Dates: start: 20120412
  6. LEVOTHYROXINE SODIUM [Concomitant]
     Indication: HYPOTHYROIDISM
     Dosage: 100 MUG, QD
     Route: 048
     Dates: start: 20120412
  7. CYCLOPHOSPHAMIDE [Suspect]
     Indication: B-CELL LYMPHOMA
     Dosage: 1483 MG, Q2WK
     Route: 042
     Dates: start: 20120426
  8. TRIMETHOPRIM + SULFAMETHOXAZOLE [Concomitant]
     Indication: PROPHYLAXIS
     Dosage: 960 MG, 2 TIMES/WK
     Route: 051
     Dates: start: 20120412
  9. ACYCLOVIR [Concomitant]
     Indication: PROPHYLAXIS
     Dosage: 400 MG, QID
     Route: 051
     Dates: start: 20120412
  10. DOXORUBICIN HCL [Suspect]
     Indication: B-CELL LYMPHOMA
     Dosage: 100 MG, Q2WK
     Route: 042
     Dates: start: 20120426
  11. SIMVASTATIN [Concomitant]
     Indication: ARTERIOSCLEROSIS CORONARY ARTERY
     Dosage: 20 MG, UNK
     Route: 048
     Dates: start: 20120412
  12. TORSEMIDE [Concomitant]
     Indication: HYPERTENSION
     Dosage: 10 MG, UNK
     Route: 048
     Dates: start: 20120412
  13. ACETYLSALICYLIC ACID SRT [Concomitant]
     Indication: ARTERIOSCLEROSIS CORONARY ARTERY
     Dosage: 100 MG, UNK
     Route: 048
     Dates: start: 20120412
  14. NEULASTA [Suspect]
     Indication: B-CELL LYMPHOMA
     Dosage: 6 MG, UNK
     Route: 058
     Dates: start: 20120429
  15. VINCRISTINE [Suspect]
     Indication: B-CELL LYMPHOMA
     Dosage: 3.94 MG, Q2WK
     Route: 042
     Dates: start: 20120426
  16. ENOXAPARIN SODIUM [Concomitant]
     Indication: ATRIAL FIBRILLATION
     Dosage: 0.9 ML, BID
     Route: 058
     Dates: start: 20120412
  17. PANTOPRAZOLE [Concomitant]
     Indication: PROPHYLAXIS AGAINST GASTROINTESTINAL ULCER
     Dosage: 80 MG, UNK
     Route: 051
     Dates: start: 20120412

REACTIONS (2)
  - THROMBOCYTOPENIA [None]
  - PRESYNCOPE [None]
